FAERS Safety Report 5733166-1 (Version None)
Quarter: 2008Q2

REPORT INFORMATION
  Report Type: 
  Country: None (occurrence: None)
  Receive Date: 20080507
  Receipt Date: 20080422
  Transmission Date: 20081010
  Serious: Yes (Hospitalization)
  Sender: FDA-Public Use
  Company Number: 2008S1006777

PATIENT
  Age: 83 Year
  Sex: Female

DRUGS (5)
  1. METFORMINE [Suspect]
     Indication: DIABETES MELLITUS
     Dosage: 1 DR, DAILY, ORAL
     Route: 048
     Dates: start: 20071106, end: 20071108
  2. GLIBENCLAMIDE                      (NO PREF. NAME) [Suspect]
     Indication: DIABETES MELLITUS
     Dosage: 1 DF, DAILY, ORAL
     Route: 048
     Dates: start: 20070701
  3. ENALAPRIL                MERCK (ENALAPRIL MALEATE) [Suspect]
  4. DILTIAZEM              (DILTIAZEM HYDROCHLORIDE) [Suspect]
  5. HYDROCHLOROTHIAZIDE [Suspect]

REACTIONS (2)
  - HYPOGLYCAEMIA [None]
  - MALAISE [None]
